FAERS Safety Report 6748715-4 (Version None)
Quarter: 2010Q2

REPORT INFORMATION
  Report Type: 
  Country: None (occurrence: None)
  Receive Date: 20100601
  Receipt Date: 20100518
  Transmission Date: 20101027
  Serious: Yes (Other)
  Sender: FDA-Public Use
  Company Number: PHHY2010PL32838

PATIENT
  Age: 18 Month
  Sex: Male

DRUGS (1)
  1. PIMECROLIMUS [Suspect]
     Indication: DERMATITIS ATOPIC
     Dosage: 1%
     Route: 061

REACTIONS (6)
  - ECZEMA HERPETICUM [None]
  - LYMPHADENOPATHY [None]
  - MALAISE [None]
  - PYREXIA [None]
  - RASH [None]
  - RASH PUSTULAR [None]
